FAERS Safety Report 8291640 (Version 2)
Quarter: 2013Q2

REPORT INFORMATION
  Report Type: Spontaneous
  Country: US (occurrence: None)
  Receive Date: 20111122
  Receipt Date: 20120426
  Transmission Date: 20140414
  Serious: Yes (Hospitalization)
  Sender: FDA-Public Use
  Company Number: PHEH2011US00586

PATIENT
  Age: 27 Year
  Sex: Female

DRUGS (6)
  1. GILENYA [Suspect]
     Indication: MULTIPLE SCLEROSIS
     Dosage: 0.5 MG, DAILY, ORAL
     Route: 048
     Dates: start: 20110727
  2. BACLOFEN [Concomitant]
  3. TEGRETOL (CARBAMAZEPINE) UNKNOWN [Concomitant]
  4. FLUOXETINE [Concomitant]
  5. GABAPENTIN [Concomitant]
  6. MVI (VITAMINS NOS) [Concomitant]

REACTIONS (2)
  - MUSCULAR WEAKNESS [None]
  - Multiple sclerosis [None]
